FAERS Safety Report 5019434-X (Version None)
Quarter: 2006Q2

REPORT INFORMATION
  Report Type: 
  Country: None (occurrence: None)
  Receive Date: 20060531
  Receipt Date: 20060518
  Transmission Date: 20061013
  Serious: Yes (Hospitalization)
  Sender: FDA-Public Use
  Company Number: 2006065865

PATIENT
  Age: 53 Year
  Sex: Male

DRUGS (6)
  1. SUTENT [Suspect]
     Indication: METASTATIC RENAL CELL CARCINOMA
     Dosage: 50 MG (50 MG DAILY INTERVAL: EVERY DAY) ORAL
     Route: 048
     Dates: start: 20060502
  2. MEGESTROL ACETATE [Concomitant]
  3. PREDNISONE [Concomitant]
  4. IRBESARTAN [Concomitant]
  5. AMLODIPINE [Concomitant]
  6. OMEPRAZOLE [Concomitant]

REACTIONS (1)
  - SUBILEUS [None]
